FAERS Safety Report 12187073 (Version 1)
Quarter: 2016Q1

REPORT INFORMATION
  Report Type: Spontaneous
  Country: US (occurrence: US)
  Receive Date: 20160317
  Receipt Date: 20160317
  Transmission Date: 20160526
  Serious: Yes (Other)
  Sender: FDA-Public Use
  Company Number: PHEH2016US005852

PATIENT
  Age: 60 Year
  Sex: Male
  Weight: 112.4 kg

DRUGS (1)
  1. ENTRESTO [Suspect]
     Active Substance: SACUBITRIL\VALSARTAN
     Indication: CARDIAC FAILURE
     Dosage: 50 MG, BID
     Route: 048
     Dates: start: 20150811, end: 20150914

REACTIONS (5)
  - Blood creatine increased [Unknown]
  - Hypovolaemia [Unknown]
  - Inappropriate schedule of drug administration [Unknown]
  - Renal function test abnormal [Not Recovered/Not Resolved]
  - Polyuria [Unknown]

NARRATIVE: CASE EVENT DATE: 20160307
